FAERS Safety Report 9995813 (Version 1)
Quarter: 2014Q1

REPORT INFORMATION
  Report Type: Spontaneous
  Country: US (occurrence: None)
  Receive Date: 20140310
  Receipt Date: 20140310
  Transmission Date: 20141002
  Serious: Yes (Hospitalization)
  Sender: FDA-Public Use
  Company Number: None

PATIENT
  Age: 29 Year
  Sex: Female
  Weight: 70.31 kg

DRUGS (2)
  1. CYMBALTA [Suspect]
     Indication: PAIN
     Dosage: BY MOUTH
     Dates: start: 20130923, end: 20140101
  2. CYMBALTA [Suspect]
     Indication: ANKYLOSING SPONDYLITIS
     Dosage: BY MOUTH
     Dates: start: 20130923, end: 20140101

REACTIONS (5)
  - Deep vein thrombosis [None]
  - Gallbladder non-functioning [None]
  - Depression [None]
  - Pain [None]
  - Memory impairment [None]
